FAERS Safety Report 6896879-4 (Version None)
Quarter: 2010Q3

REPORT INFORMATION
  Report Type: 
  Country: None (occurrence: None)
  Receive Date: 20100802
  Receipt Date: 20070226
  Transmission Date: 20110219
  Serious: Yes (Hospitalization, Other)
  Sender: FDA-Public Use
  Company Number: US-PFIZER INC-2007015844

PATIENT
  Sex: Female
  Weight: 63.5 kg

DRUGS (4)
  1. LYRICA [Suspect]
     Dates: start: 20070201
  2. OXYCODONE [Concomitant]
  3. LEXAPRO [Concomitant]
  4. OXYCONTIN [Concomitant]

REACTIONS (4)
  - DRUG TOXICITY [None]
  - MALAISE [None]
  - NEUROLOGICAL SYMPTOM [None]
  - RENAL FAILURE [None]
